FAERS Safety Report 15267443 (Version 1)
Quarter: 2018Q3

REPORT INFORMATION
  Report Type: Spontaneous
  Country: US (occurrence: US)
  Receive Date: 20180724
  Receipt Date: 20180724
  Transmission Date: 20181010
  Serious: Yes (Life-Threatening)
  Sender: FDA-Public Use
  Company Number: None

PATIENT
  Age: 79 Year
  Sex: Female
  Weight: 77 kg

DRUGS (10)
  1. AMIODARONE [Concomitant]
     Active Substance: AMIODARONE
  2. ASPIRIN. [Concomitant]
     Active Substance: ASPIRIN
  3. LEVOTHYROXINE. [Concomitant]
     Active Substance: LEVOTHYROXINE
  4. ACETAMINOPHEN. [Concomitant]
     Active Substance: ACETAMINOPHEN
  5. ATORVASTATIN [Concomitant]
     Active Substance: ATORVASTATIN
  6. FOLIC ACID. [Concomitant]
     Active Substance: FOLIC ACID
  7. MIDODRINE [Concomitant]
     Active Substance: MIDODRINE
  8. RENVELA [Suspect]
     Active Substance: SEVELAMER CARBONATE
     Route: 048
  9. ENOXAPARIN [Concomitant]
     Active Substance: ENOXAPARIN
  10. OXYCODONE [Concomitant]
     Active Substance: OXYCODONE

REACTIONS (10)
  - Haematochezia [None]
  - Treatment failure [None]
  - Diarrhoea [None]
  - Large intestinal haemorrhage [None]
  - Rectal ulcer [None]
  - Colitis ischaemic [None]
  - Gastrointestinal mucosal disorder [None]
  - Large intestinal ulcer [None]
  - Medication residue present [None]
  - Rectal haemorrhage [None]

NARRATIVE: CASE EVENT DATE: 20180630
